FAERS Safety Report 21802693 (Version 6)
Quarter: 2024Q2

REPORT INFORMATION
  Report Type: Report from Study
  Country: AR (occurrence: AR)
  Receive Date: 20221231
  Receipt Date: 20240516
  Transmission Date: 20240716
  Serious: Yes (Hospitalization, Other)
  Sender: FDA-Public Use
  Company Number: AR-002147023-NVSC2020AR347931

PATIENT
  Sex: Male

DRUGS (7)
  1. RYDAPT [Suspect]
     Active Substance: MIDOSTAURIN
     Indication: Systemic mastocytosis
     Dosage: 200 MG, BID
     Route: 048
     Dates: start: 20181228
  2. RYDAPT [Suspect]
     Active Substance: MIDOSTAURIN
     Dosage: 2 DOSAGE FORM, QD
     Route: 048
  3. RYDAPT [Suspect]
     Active Substance: MIDOSTAURIN
     Dosage: 100 MG, BID
     Route: 048
  4. RYDAPT [Suspect]
     Active Substance: MIDOSTAURIN
     Dosage: 50 MG, QD (BY MOUTH)
     Route: 048
  5. RYDAPT [Suspect]
     Active Substance: MIDOSTAURIN
     Dosage: 100 MG, QD
     Route: 048
  6. INSULIN NOS [Concomitant]
     Active Substance: INSULIN NOS
     Indication: Product used for unknown indication
     Dosage: UNK
     Route: 065
  7. METFORMIN [Concomitant]
     Active Substance: METFORMIN HYDROCHLORIDE
     Indication: Product used for unknown indication
     Dosage: UNK
     Route: 065

REACTIONS (12)
  - Gangrene [Unknown]
  - Diabetes mellitus [Unknown]
  - Dengue fever [Recovered/Resolved]
  - Diabetes mellitus [Unknown]
  - Colitis [Unknown]
  - Blister [Unknown]
  - Swelling [Unknown]
  - Pain in extremity [Unknown]
  - Malaise [Unknown]
  - Incorrect dose administered [Unknown]
  - Wrong technique in product usage process [Unknown]
  - Intentional product use issue [Unknown]

NARRATIVE: CASE EVENT DATE: 20180101
